FAERS Safety Report 18460210 (Version 2)
Quarter: 2020Q4

REPORT INFORMATION
  Report Type: Report from Study
  Country: US (occurrence: US)
  Receive Date: 20201103
  Receipt Date: 20201210
  Transmission Date: 20210114
  Serious: Yes (Hospitalization)
  Sender: FDA-Public Use
  Company Number: US-SHIRE-US202031610

PATIENT
  Age: 70 Year
  Sex: Female

DRUGS (12)
  1. TEDUGLUTIDE [Suspect]
     Active Substance: TEDUGLUTIDE
     Dosage: 3.14 MILLIGRAM (0.05 MILLIGRAM/KILOGRAM DAILY DOSE), OTHER (4 DOSES PER WEEK)
     Route: 065
     Dates: start: 20190910
  2. TEDUGLUTIDE [Suspect]
     Active Substance: TEDUGLUTIDE
     Dosage: 3.14 MILLIGRAM (0.05 MILLIGRAM/KILOGRAM DAILY DOSE), OTHER (4 DOSES PER WEEK)
     Route: 065
     Dates: start: 20190910
  3. CEFEPIME [Concomitant]
     Active Substance: CEFEPIME HYDROCHLORIDE
     Indication: SEPSIS
  4. LEVOTHYROXINE. [Concomitant]
     Active Substance: LEVOTHYROXINE
     Indication: SHORT-BOWEL SYNDROME
  5. LEVOFLOXACIN. [Concomitant]
     Active Substance: LEVOFLOXACIN
     Indication: BACTERAEMIA
  6. TEDUGLUTIDE [Suspect]
     Active Substance: TEDUGLUTIDE
     Indication: SHORT-BOWEL SYNDROME
     Dosage: 3.14 MILLIGRAM (0.05 MILLIGRAM/KILOGRAM DAILY DOSE), OTHER (7 DOSES PER WEEK)
     Route: 065
     Dates: start: 20190209, end: 20190909
  7. TEDUGLUTIDE [Suspect]
     Active Substance: TEDUGLUTIDE
     Indication: SHORT-BOWEL SYNDROME
     Dosage: 3.14 MILLIGRAM (0.05 MILLIGRAM/KILOGRAM DAILY DOSE), OTHER (7 DOSES PER WEEK)
     Route: 065
     Dates: start: 20190209, end: 20190909
  8. TEDUGLUTIDE [Suspect]
     Active Substance: TEDUGLUTIDE
     Dosage: 3.14 MILLIGRAM (0.05 MILLIGRAM/KILOGRAM DAILY DOSE), OTHER (4 DOSES PER WEEK)
     Route: 065
     Dates: start: 20190910
  9. TEDUGLUTIDE [Suspect]
     Active Substance: TEDUGLUTIDE
     Dosage: 3.14 MILLIGRAM (0.05 MILLIGRAM/KILOGRAM DAILY DOSE), OTHER (4 DOSES PER WEEK)
     Route: 065
     Dates: start: 20190910
  10. ZOSYN [Concomitant]
     Active Substance: PIPERACILLIN SODIUM\TAZOBACTAM SODIUM
     Indication: SEPSIS
  11. TEDUGLUTIDE [Suspect]
     Active Substance: TEDUGLUTIDE
     Indication: SHORT-BOWEL SYNDROME
     Dosage: 3.14 MILLIGRAM (0.05 MILLIGRAM/KILOGRAM DAILY DOSE), OTHER (7 DOSES PER WEEK)
     Route: 065
     Dates: start: 20190209, end: 20190909
  12. TEDUGLUTIDE [Suspect]
     Active Substance: TEDUGLUTIDE
     Indication: SHORT-BOWEL SYNDROME
     Dosage: 3.14 MILLIGRAM (0.05 MILLIGRAM/KILOGRAM DAILY DOSE), OTHER (7 DOSES PER WEEK)
     Route: 065
     Dates: start: 20190209, end: 20190909

REACTIONS (1)
  - Bacteraemia [Recovered/Resolved]

NARRATIVE: CASE EVENT DATE: 20200921
